FAERS Safety Report 11723299 (Version 1)
Quarter: 2015Q4

REPORT INFORMATION
  Report Type: Spontaneous
  Country: US (occurrence: US)
  Receive Date: 20151111
  Receipt Date: 20151111
  Transmission Date: 20160304
  Serious: No
  Sender: FDA-Public Use
  Company Number: US-EMD SERONO-8051437

PATIENT
  Sex: Female
  Weight: 77.1 kg

DRUGS (9)
  1. REBIF [Suspect]
     Active Substance: INTERFERON BETA-1A
     Indication: MULTIPLE SCLEROSIS
  2. AVONEX [Concomitant]
     Active Substance: INTERFERON BETA-1A
     Indication: PRODUCT USED FOR UNKNOWN INDICATION
  3. ZOCOR [Concomitant]
     Active Substance: SIMVASTATIN
     Indication: BLOOD CHOLESTEROL INCREASED
  4. GABAPENTIN. [Concomitant]
     Active Substance: GABAPENTIN
     Indication: PRODUCT USED FOR UNKNOWN INDICATION
  5. LISINOPRIL. [Concomitant]
     Active Substance: LISINOPRIL
     Indication: HYPERTENSION
  6. AMPYRA [Suspect]
     Active Substance: DALFAMPRIDINE
     Indication: MULTIPLE SCLEROSIS
     Route: 048
     Dates: start: 20110121, end: 20110123
  7. TRAZODONE [Concomitant]
     Active Substance: TRAZODONE HYDROCHLORIDE
     Indication: PRODUCT USED FOR UNKNOWN INDICATION
  8. CELEBREX [Concomitant]
     Active Substance: CELECOXIB
     Indication: ARTHRITIS
  9. METFORMIN [Concomitant]
     Active Substance: METFORMIN HYDROCHLORIDE
     Indication: TYPE 2 DIABETES MELLITUS

REACTIONS (16)
  - Urinary tract infection [Recovered/Resolved]
  - Eye pain [Unknown]
  - Nausea [Recovered/Resolved]
  - Oral pain [Unknown]
  - Oropharyngeal pain [Unknown]
  - Asthenopia [Unknown]
  - Injection site atrophy [Unknown]
  - Skin burning sensation [Unknown]
  - Memory impairment [Unknown]
  - Injection site mass [Unknown]
  - Gait disturbance [Unknown]
  - Confusional state [Unknown]
  - Nasal discomfort [Unknown]
  - Pruritus [Unknown]
  - Injection site pain [Unknown]
  - Back pain [Unknown]
